FAERS Safety Report 8975064 (Version 1)
Quarter: 2012Q4

REPORT INFORMATION
  Report Type: 
  Country: RU (occurrence: RU)
  Receive Date: 20121220
  Receipt Date: 20121220
  Transmission Date: 20130627
  Serious: Yes (Other)
  Sender: FDA-Public Use
  Company Number: RU-BAYER-2012-130616

PATIENT
  Age: 53 Year
  Sex: Male

DRUGS (2)
  1. LEVITRA [Suspect]
     Indication: MALE ERECTILE DISORDER
     Dosage: 5 mg, 2 hours before coitus
  2. LEVITRA [Suspect]
     Indication: MALE ERECTILE DISORDER
     Dosage: 5 mg, 1 hour before coitus

REACTIONS (4)
  - Blood pressure increased [None]
  - Heart rate increased [None]
  - Feeling hot [None]
  - Off label use [None]
